FAERS Safety Report 8343422-9 (Version None)
Quarter: 2012Q2

REPORT INFORMATION
  Report Type: 
  Country: None (occurrence: None)
  Receive Date: 20120508
  Receipt Date: 20120427
  Transmission Date: 20120825
  Serious: Yes (Hospitalization)
  Sender: FDA-Public Use
  Company Number: CH-JNJFOC-20120413971

PATIENT
  Sex: Female
  Weight: 53 kg

DRUGS (3)
  1. DIAPHIN [Concomitant]
     Route: 042
     Dates: start: 20100328
  2. INVEGA [Suspect]
     Indication: SCHIZOPHRENIA, PARANOID TYPE
     Route: 048
     Dates: start: 20111206, end: 20111208
  3. IMOVANE [Concomitant]
     Route: 048
     Dates: start: 20110804

REACTIONS (2)
  - DYSPNOEA [None]
  - PSYCHOTIC DISORDER [None]
